FAERS Safety Report 18790021 (Version 1)
Quarter: 2021Q1

REPORT INFORMATION
  Report Type: Spontaneous
  Country: US (occurrence: US)
  Receive Date: 20210126
  Receipt Date: 20210126
  Transmission Date: 20210419
  Serious: No
  Sender: FDA-Public Use
  Company Number: US-009507513-2012USA012352

PATIENT
  Age: 66 Year
  Sex: Male

DRUGS (3)
  1. XARELTO [Concomitant]
     Active Substance: RIVAROXABAN
     Indication: PORTAL VEIN THROMBOSIS
     Dosage: UNK
  2. INVANZ [Suspect]
     Active Substance: ERTAPENEM SODIUM
     Indication: ENTEROBACTER BACTERAEMIA
     Dosage: UNK, FOR 2 WEEKS
  3. INVANZ [Suspect]
     Active Substance: ERTAPENEM SODIUM
     Indication: VENA CAVA THROMBOSIS
     Dosage: UNK, FOR 6 WEEKS

REACTIONS (1)
  - Off label use [Unknown]
